FAERS Safety Report 4511751-2 (Version None)
Quarter: 2004Q4

REPORT INFORMATION
  Report Type: 
  Country: None (occurrence: None)
  Receive Date: 20041123
  Receipt Date: 20041123
  Transmission Date: 20050328
  Serious: Yes (Other)
  Sender: FDA-Public Use
  Company Number: None

PATIENT
  Age: 71 Year
  Sex: Male
  Weight: 71.2 kg

DRUGS (12)
  1. OXYBUTYNIN CHLORIDE [Suspect]
  2. FELODIPINE [Concomitant]
  3. FOSINOPRIL NA [Concomitant]
  4. FUROSEMIDE [Concomitant]
  5. SERTRALINE HCL [Concomitant]
  6. FINASTERIDE [Concomitant]
  7. TOLTERODINE TARTRATE [Concomitant]
  8. MELOXICAM [Concomitant]
  9. MORPHINE [Concomitant]
  10. AMOXICILLIN [Concomitant]
  11. TERAZOSIN HCL [Concomitant]
  12. ATENOLOL [Concomitant]

REACTIONS (1)
  - DRY MOUTH [None]
